FAERS Safety Report 9306494 (Version 2)
Quarter: 2013Q2

REPORT INFORMATION
  Report Type: Spontaneous
  Country: FR (occurrence: FR)
  Receive Date: 20130523
  Receipt Date: 20130607
  Transmission Date: 20140414
  Serious: Yes (Death, Hospitalization)
  Sender: FDA-Public Use
  Company Number: FR-GLAXOSMITHKLINE-B0872171A

PATIENT
  Age: 28 Year
  Sex: Female
  Weight: 42 kg

DRUGS (13)
  1. BENLYSTA [Suspect]
     Indication: SYSTEMIC LUPUS ERYTHEMATOSUS
     Dosage: 400MG CYCLIC
     Route: 042
     Dates: start: 20130118, end: 20130207
  2. CORTANCYL [Suspect]
     Indication: SYSTEMIC LUPUS ERYTHEMATOSUS
     Dosage: 15MG PER DAY
     Route: 048
  3. CELLCEPT [Suspect]
     Indication: SYSTEMIC LUPUS ERYTHEMATOSUS
     Dosage: 2G PER DAY
     Route: 048
  4. TRIATEC [Concomitant]
     Dosage: 10MG PER DAY
     Route: 048
  5. LOVENOX [Concomitant]
     Dosage: .2ML PER DAY
     Route: 065
  6. DIFFU K [Concomitant]
  7. OGAST [Concomitant]
  8. CACIT VITAMINE D3 [Concomitant]
  9. POLARAMINE [Concomitant]
     Dosage: 5MG PER DAY
     Route: 048
  10. AMLOR [Concomitant]
     Route: 048
  11. ALDACTAZINE [Concomitant]
     Route: 048
  12. NIVAQUINE [Concomitant]
     Dosage: 1TAB TWICE PER DAY
     Route: 048
  13. HYPERIUM [Concomitant]
     Route: 048

REACTIONS (12)
  - Pneumonia influenzal [Fatal]
  - Influenza A virus test positive [Unknown]
  - Sepsis [Not Recovered/Not Resolved]
  - Respiratory distress [Fatal]
  - Multi-organ failure [Fatal]
  - Anuria [Not Recovered/Not Resolved]
  - Pyrexia [Not Recovered/Not Resolved]
  - Influenza [None]
  - Myopericarditis [None]
  - Lung infection [None]
  - Mitral valve incompetence [None]
  - Hypochromic anaemia [None]
